APPROVED DRUG PRODUCT: GABAPENTIN
Active Ingredient: GABAPENTIN
Strength: 250MG/5ML
Dosage Form/Route: SOLUTION;ORAL
Application: A078974 | Product #001 | TE Code: AA
Applicant: MISSION PHARMACAL CO
Approved: Feb 18, 2011 | RLD: No | RS: No | Type: RX